FAERS Safety Report 18650034 (Version 1)
Quarter: 2020Q4

REPORT INFORMATION
  Report Type: Report from Study
  Country: MA (occurrence: MA)
  Receive Date: 20201222
  Receipt Date: 20201222
  Transmission Date: 20210114
  Serious: Yes (Other)
  Sender: FDA-Public Use
  Company Number: NVSC2020MA278083

PATIENT
  Age: 58 Year
  Sex: Female

DRUGS (1)
  1. AFINITOR [Suspect]
     Active Substance: EVEROLIMUS
     Indication: BREAST CANCER
     Dosage: 5 MG, BID
     Route: 048
     Dates: start: 20201007

REACTIONS (9)
  - Blood test abnormal [Unknown]
  - Fall [Unknown]
  - Headache [Unknown]
  - Blood glucose increased [Unknown]
  - Head discomfort [Unknown]
  - Chest injury [Unknown]
  - Pain in extremity [Unknown]
  - Muscular weakness [Unknown]
  - Limb injury [Unknown]

NARRATIVE: CASE EVENT DATE: 20201108
